FAERS Safety Report 13264249 (Version 2)
Quarter: 2017Q1

REPORT INFORMATION
  Report Type: Not Available
  Country: None (occurrence: US)
  Receive Date: 20170223
  Receipt Date: 20170315
  Transmission Date: 20170428
  Serious: Yes (Hospitalization)
  Sender: FDA-Public Use
  Company Number: US-AKORN-50281

PATIENT
  Age: 62 Year
  Sex: Male

DRUGS (1)
  1. LACTULOSE SOLUTION,USP [Suspect]
     Active Substance: LACTULOSE

REACTIONS (2)
  - Raoultella ornithinolytica infection [Recovered/Resolved]
  - Bacterial infection [Unknown]
